FAERS Safety Report 9156065 (Version 2)
Quarter: 2013Q2

REPORT INFORMATION
  Report Type: Spontaneous
  Country: US (occurrence: US)
  Receive Date: 20130311
  Receipt Date: 20130415
  Transmission Date: 20140414
  Serious: No
  Sender: FDA-Public Use
  Company Number: US-ASTRAZENECA-2013SE10119

PATIENT
  Age: 57 Year
  Sex: Female
  Weight: 79.4 kg

DRUGS (9)
  1. SYMBICORT [Suspect]
     Indication: ASTHMA
     Dosage: 160 MCG 2 PUFFS BID
     Route: 055
     Dates: start: 201207
  2. SYMBICORT [Suspect]
     Indication: ASTHMA
     Dosage: 160 MCG, AS NEEDED
     Route: 055
     Dates: start: 201207
  3. ASPIRIN [Concomitant]
  4. COREG [Concomitant]
     Indication: HYPERTENSION
  5. FUROSEMIDE [Concomitant]
     Indication: HYPERTENSION
  6. METHOCARBAN [Concomitant]
     Indication: MUSCLE RELAXANT THERAPY
  7. ADVIL [Concomitant]
     Indication: BACK PAIN
  8. ALLEVE [Concomitant]
     Indication: BACK PAIN
  9. ALBUTEROL INHALER [Concomitant]

REACTIONS (2)
  - Muscle spasms [Unknown]
  - Intentional drug misuse [Unknown]
